FAERS Safety Report 14955036 (Version 2)
Quarter: 2018Q2

REPORT INFORMATION
  Report Type: Spontaneous
  Country: PR (occurrence: PR)
  Receive Date: 20180531
  Receipt Date: 20180601
  Transmission Date: 20180711
  Serious: Yes (Other)
  Sender: FDA-Public Use
  Company Number: PR-BRISTOL-MYERS SQUIBB COMPANY-BMS-2018-050184

PATIENT
  Age: 76 Year
  Sex: Female
  Weight: 65.77 kg

DRUGS (2)
  1. ELIQUIS [Suspect]
     Active Substance: APIXABAN
     Indication: PRODUCT USED FOR UNKNOWN INDICATION
     Dosage: 2.5 MG, BID
     Route: 065
  2. LASIX [Suspect]
     Active Substance: FUROSEMIDE
     Indication: POLYURIA
     Route: 065

REACTIONS (1)
  - Nephropathy [Unknown]
